FAERS Safety Report 10088152 (Version 2)
Quarter: 2014Q2

REPORT INFORMATION
  Report Type: Spontaneous
  Country: US (occurrence: US)
  Receive Date: 20140421
  Receipt Date: 20140421
  Transmission Date: 20141212
  Serious: Yes (Other)
  Sender: FDA-Public Use
  Company Number: US-AMGEN-USASP2013037201

PATIENT
  Age: 56 Year
  Sex: Male

DRUGS (4)
  1. ENBREL [Suspect]
     Indication: RHEUMATOID ARTHRITIS
     Dosage: 50 MG, QWK
     Route: 065
     Dates: start: 199901
  2. METHOTREXATE [Suspect]
     Indication: PRODUCT USED FOR UNKNOWN INDICATION
     Dosage: UNK
     Route: 065
  3. PLAQUENIL                          /00072602/ [Concomitant]
     Dosage: 200 MG, QD
     Route: 048
     Dates: start: 201304
  4. CELEBREX [Concomitant]
     Dosage: 200 MG, QD
     Dates: start: 201304, end: 20140413

REACTIONS (15)
  - Bladder cancer [Recovered/Resolved]
  - Knee arthroplasty [Recovered/Resolved]
  - Pulmonary fibrosis [Unknown]
  - Renal failure [Not Recovered/Not Resolved]
  - Toe operation [Recovered/Resolved]
  - Chondrolysis [Not Recovered/Not Resolved]
  - Peripheral swelling [Not Recovered/Not Resolved]
  - Joint swelling [Not Recovered/Not Resolved]
  - Hypoaesthesia [Not Recovered/Not Resolved]
  - Pain in extremity [Not Recovered/Not Resolved]
  - Ligament sprain [Unknown]
  - Arthralgia [Not Recovered/Not Resolved]
  - Condition aggravated [Unknown]
  - Lung disorder [Unknown]
  - Injection site bruising [Unknown]
